FAERS Safety Report 10231049 (Version 1)
Quarter: 2014Q2

REPORT INFORMATION
  Report Type: Spontaneous
  Country: DE (occurrence: DE)
  Receive Date: 20140611
  Receipt Date: 20140611
  Transmission Date: 20141212
  Serious: Yes (Hospitalization)
  Sender: FDA-Public Use
  Company Number: DE-TEVA-486520GER

PATIENT
  Age: 30 Year
  Sex: Female

DRUGS (2)
  1. DIAZEPAM [Suspect]
     Route: 042
     Dates: start: 20130517
  2. HALDOL [Suspect]
     Route: 030
     Dates: start: 20130517

REACTIONS (1)
  - Sinus bradycardia [Recovering/Resolving]
